FAERS Safety Report 4507503-X (Version None)
Quarter: 2004Q4

REPORT INFORMATION
  Report Type: 
  Country: None (occurrence: None)
  Receive Date: 20041123
  Receipt Date: 20041112
  Transmission Date: 20050328
  Serious: Yes (Hospitalization)
  Sender: FDA-Public Use
  Company Number: US-JNJFOC-20041103579

PATIENT
  Sex: Male

DRUGS (10)
  1. INFLIXIMAB [Suspect]
     Indication: RHEUMATOID ARTHRITIS
     Route: 042
  2. ASPIRIN [Concomitant]
  3. MS CONTIN [Concomitant]
  4. HYDROCHLOROTHIAZIDE [Concomitant]
  5. HUMULIN [Concomitant]
  6. HUMULIN [Concomitant]
  7. ACCUPRIL [Concomitant]
  8. OXYCONTIN [Concomitant]
  9. AMITRIPTYLINE [Concomitant]
  10. TEGRETOL [Concomitant]

REACTIONS (1)
  - PEPTIC ULCER [None]
